FAERS Safety Report 7798026-3 (Version None)
Quarter: 2011Q4

REPORT INFORMATION
  Report Type: 
  Country: None (occurrence: None)
  Receive Date: 20111005
  Receipt Date: 20110926
  Transmission Date: 20120403
  Serious: Yes (Hospitalization)
  Sender: FDA-Public Use
  Company Number: JP-BRISTOL-MYERS SQUIBB COMPANY-16098139

PATIENT
  Age: 46 Year
  Sex: Female

DRUGS (1)
  1. ORENCIA [Suspect]
     Indication: RHEUMATOID ARTHRITIS
     Dosage: 500 MG UNTIL 10 CYCLES AND 750 MG UNTIL 13 CYCLES,
     Route: 041
     Dates: start: 20101030, end: 20110905

REACTIONS (2)
  - MASS [None]
  - PLEURAL EFFUSION [None]
